FAERS Safety Report 8589723 (Version 3)
Quarter: 2012Q4

REPORT INFORMATION
  Report Type: 
  Country: US (occurrence: US)
  Receive Date: 20120601
  Receipt Date: 20121114
  Transmission Date: 20130627
  Serious: Yes (Hospitalization, Other)
  Sender: FDA-Public Use
  Company Number: US-BIOGENIDEC-2012BI018175

PATIENT
  Age: 57 Year
  Sex: Male

DRUGS (13)
  1. AVONEX [Suspect]
     Indication: MULTIPLE SCLEROSIS
     Route: 030
     Dates: start: 200211
  2. AVONEX [Suspect]
     Indication: MULTIPLE SCLEROSIS
     Route: 030
     Dates: start: 200304
  3. BOTOX [Concomitant]
  4. FAMOTIDINE [Concomitant]
  5. SIMVASTATIN [Concomitant]
  6. LEXAPRO [Concomitant]
  7. METOPROLOL [Concomitant]
  8. PLAVIX [Concomitant]
  9. LIDODERM [Concomitant]
     Indication: PAIN
  10. NORCO [Concomitant]
  11. ASPIRIN [Concomitant]
  12. COLACE [Concomitant]
  13. BACLOFEN [Concomitant]
     Indication: MUSCLE SPASTICITY

REACTIONS (4)
  - Cerebral infarction [Not Recovered/Not Resolved]
  - Wound infection [Unknown]
  - Carotid artery occlusion [Unknown]
  - Carotid artery stenosis [Unknown]
